FAERS Safety Report 21221851 (Version 2)
Quarter: 2022Q4

REPORT INFORMATION
  Report Type: Report from Study
  Country: HN (occurrence: HN)
  Receive Date: 20220817
  Receipt Date: 20221029
  Transmission Date: 20230113
  Serious: Yes (Other)
  Sender: FDA-Public Use
  Company Number: HN-NOVARTISPH-PHHY2017HN141024

PATIENT
  Age: 57 Year
  Sex: Female

DRUGS (3)
  1. EXFORGE HCT [Suspect]
     Active Substance: AMLODIPINE BESYLATE\HYDROCHLOROTHIAZIDE\VALSARTAN
     Indication: Product used for unknown indication
     Dosage: 1 DOSAGE FORM (10MG AMLODIPINE/25MG HYDROCHLOROTHIAZIDE/320MG VALSARTAN)
     Route: 065
  2. EXFORGE HCT [Suspect]
     Active Substance: AMLODIPINE BESYLATE\HYDROCHLOROTHIAZIDE\VALSARTAN
     Dosage: 1 DOSAGE FORM, QD
     Route: 065
  3. EXFORGE HCT [Suspect]
     Active Substance: AMLODIPINE BESYLATE\HYDROCHLOROTHIAZIDE\VALSARTAN
     Dosage: UNK (STARTED 4 OR 5 YEARS AGO)
     Route: 065

REACTIONS (12)
  - Upper limb fracture [Unknown]
  - Blood pressure fluctuation [Unknown]
  - Visual impairment [Unknown]
  - Nervousness [Unknown]
  - Fall [Unknown]
  - Movement disorder [Unknown]
  - Hypertension [Unknown]
  - Overdose [Unknown]
  - Malaise [Unknown]
  - Dizziness [Unknown]
  - Packaging design issue [Unknown]
  - Product dose omission issue [Unknown]
